FAERS Safety Report 13057648 (Version 3)
Quarter: 2017Q4

REPORT INFORMATION
  Report Type: Report from Study
  Country: JP (occurrence: JP)
  Receive Date: 20161223
  Receipt Date: 20171003
  Transmission Date: 20180320
  Serious: Yes (Death, Hospitalization)
  Sender: FDA-Public Use
  Company Number: JP-ROCHE-1871597

PATIENT
  Age: 71 Year
  Sex: Male
  Weight: 51.3 kg

DRUGS (23)
  1. OMALIZUMAB. [Suspect]
     Active Substance: OMALIZUMAB
     Dosage: 300 MG, BIW
     Route: 058
     Dates: start: 20160712
  2. THEOPHYLLINE [Concomitant]
     Active Substance: THEOPHYLLINE ANHYDROUS
     Indication: ASTHMA
     Dosage: UNK
     Route: 065
     Dates: end: 20161115
  3. MUCOSOLVAN [Concomitant]
     Active Substance: AMBROXOL HYDROCHLORIDE
     Indication: CHRONIC OBSTRUCTIVE PULMONARY DISEASE
     Dosage: 45 MG, UNK
     Route: 048
     Dates: end: 20161115
  4. RECALBON (JAPAN) [Concomitant]
     Active Substance: MINODRONIC ACID
     Indication: PROPHYLAXIS
     Dosage: 1.79 MG, UNK
     Route: 048
     Dates: end: 20161115
  5. OMALIZUMAB. [Suspect]
     Active Substance: OMALIZUMAB
     Dosage: 600 MG, ONCE 4 WEEKS
     Route: 058
     Dates: start: 20160920
  6. PREDONINE [Concomitant]
     Active Substance: PREDNISOLONE
     Indication: ASTHMA
     Dosage: 20 MG, QD
     Route: 048
     Dates: end: 20161115
  7. OMALIZUMAB. [Suspect]
     Active Substance: OMALIZUMAB
     Indication: ASTHMA
     Dosage: 300 MG, BIW
     Route: 058
     Dates: start: 20160628
  8. KIPRES [Concomitant]
     Active Substance: MONTELUKAST SODIUM
     Indication: ASTHMA
     Dosage: 10 MG, QD
     Route: 048
     Dates: end: 20161115
  9. FEBURIC [Concomitant]
     Active Substance: FEBUXOSTAT
     Indication: HYPERURICAEMIA
     Dosage: 10 MG, UNK
     Route: 048
     Dates: end: 20161115
  10. CLARITH [Concomitant]
     Active Substance: CLARITHROMYCIN
     Indication: BRONCHITIS CHRONIC
     Dosage: 200 MG, UNK
     Route: 048
     Dates: end: 20161115
  11. MUCODYNE [Concomitant]
     Active Substance: CARBOCYSTEINE
     Indication: CHRONIC OBSTRUCTIVE PULMONARY DISEASE
     Dosage: 1500 MG, UNK
     Route: 048
     Dates: end: 20161115
  12. SOLU-CORTEF [Concomitant]
     Active Substance: HYDROCORTISONE SODIUM SUCCINATE
     Indication: ASTHMA
     Dosage: 300 MG, QD
     Route: 050
     Dates: end: 20160829
  13. FLUTIFORM [Concomitant]
     Active Substance: FLUTICASONE PROPIONATE\FORMOTEROL FUMARATE
     Indication: ASTHMA
     Dosage: 250 UG, BID
     Route: 055
     Dates: end: 20161115
  14. DIART [Concomitant]
     Active Substance: AZOSEMIDE
     Indication: HYPERTENSION
     Dosage: 30 MG, UNK
     Route: 048
     Dates: end: 20161115
  15. NEOPHYLLIN [Concomitant]
     Active Substance: AMINOPHYLLINE
     Indication: ASTHMA
     Dosage: 125 MG, QD
     Route: 050
     Dates: end: 20160829
  16. OMALIZUMAB. [Suspect]
     Active Substance: OMALIZUMAB
     Dosage: 300 MG, BIW
     Route: 058
     Dates: start: 20160726
  17. OMALIZUMAB. [Suspect]
     Active Substance: OMALIZUMAB
     Dosage: 600 MG, ONCE 4 WEEKS
     Route: 058
     Dates: start: 20160823
  18. ADOAIR [Concomitant]
     Active Substance: FLUTICASONE PROPIONATE\SALMETEROL XINAFOATE
     Indication: PRODUCT USED FOR UNKNOWN INDICATION
     Dosage: UNK
     Route: 065
  19. NEXIUM [Concomitant]
     Active Substance: ESOMEPRAZOLE MAGNESIUM
     Indication: GASTRIC ULCER
     Dosage: 20 MG, UNK
     Route: 048
     Dates: end: 20161115
  20. OMALIZUMAB. [Suspect]
     Active Substance: OMALIZUMAB
     Dosage: 300 MG, BIW
     Route: 058
     Dates: start: 20160809
  21. OMALIZUMAB. [Suspect]
     Active Substance: OMALIZUMAB
     Dosage: 600 MG, ONCE 4 WEEKS
     Route: 058
     Dates: start: 20161018
  22. CALBLOCK [Concomitant]
     Active Substance: AZELNIDIPINE
     Indication: HYPERTENSION
     Dosage: 16 MG, UNK
     Route: 048
     Dates: end: 20161115
  23. GASCON [Concomitant]
     Active Substance: DIMETHICONE
     Indication: GASTRIC ULCER
     Dosage: 120 MG, UNK
     Route: 048
     Dates: end: 20161115

REACTIONS (1)
  - Interstitial lung disease [Fatal]

NARRATIVE: CASE EVENT DATE: 20161116
